FAERS Safety Report 16785310 (Version 1)
Quarter: 2019Q3

REPORT INFORMATION
  Report Type: Spontaneous
  Country: US (occurrence: US)
  Receive Date: 20190717
  Receipt Date: 20190717
  Transmission Date: 20191005
  Serious: No
  Sender: FDA-Public Use
  Company Number: None

PATIENT
  Age: 58 Year
  Sex: Female
  Weight: 136.08 kg

DRUGS (16)
  1. ESTRADIOL. [Suspect]
     Active Substance: ESTRADIOL
  2. LINZESS [Concomitant]
     Active Substance: LINACLOTIDE
  3. VITAMIN D3 [Concomitant]
     Active Substance: CHOLECALCIFEROL
  4. ESTROGEN [Suspect]
     Active Substance: ESTROGENS
  5. LEVOTHYROXINE. [Concomitant]
     Active Substance: LEVOTHYROXINE
  6. CALCIUM [Concomitant]
     Active Substance: CALCIUM
  7. PHENTEMINE [Concomitant]
     Active Substance: PHENTERMINE
  8. ABILIFY [Suspect]
     Active Substance: ARIPIPRAZOLE
     Indication: DEPRESSION
  9. ABILIFY [Suspect]
     Active Substance: ARIPIPRAZOLE
     Indication: HORMONE THERAPY
  10. PRAVASTATIN SODIUM. [Concomitant]
     Active Substance: PRAVASTATIN SODIUM
  11. ARIPIPRAZOLE. [Concomitant]
     Active Substance: ARIPIPRAZOLE
  12. FLUTICASONE. [Concomitant]
     Active Substance: FLUTICASONE
  13. PREMARIN [Suspect]
     Active Substance: ESTROGENS, CONJUGATED
  14. LOSARTAN AND HYDROCHLOROTHIAZIDE [Concomitant]
     Active Substance: HYDROCHLOROTHIAZIDE\LOSARTAN POTASSIUM
  15. PROGESTERONE. [Suspect]
     Active Substance: PROGESTERONE
  16. METHOCARBAMAL [Concomitant]

REACTIONS (2)
  - Hepatic cirrhosis [None]
  - Hepatic steatosis [None]

NARRATIVE: CASE EVENT DATE: 20190515
